FAERS Safety Report 4277898-3 (Version None)
Quarter: 2004Q1

REPORT INFORMATION
  Report Type: 
  Country: None (occurrence: None)
  Receive Date: 20040122
  Receipt Date: 20040122
  Transmission Date: 20041129
  Serious: Yes (Other)
  Sender: FDA-Public Use
  Company Number: None

PATIENT
  Sex: Female
  Weight: 141.5223 kg

DRUGS (5)
  1. GLIPIZIDE ER   10MG   WATSON [Suspect]
     Indication: DIABETES MELLITUS NON-INSULIN-DEPENDENT
     Dosage: 10MG  QD  ORAL
     Route: 048
     Dates: start: 20031201, end: 20040121
  2. HYDROCHLOROTHIAZIDE [Concomitant]
  3. FLOVENT [Concomitant]
  4. KCL TAB [Concomitant]
  5. TAGAMET [Concomitant]

REACTIONS (2)
  - BLOOD GLUCOSE INCREASED [None]
  - PHARMACEUTICAL PRODUCT COMPLAINT [None]
